FAERS Safety Report 11062035 (Version 1)
Quarter: 2015Q2

REPORT INFORMATION
  Report Type: Spontaneous
  Country: JP (occurrence: JP)
  Receive Date: 20150424
  Receipt Date: 20150424
  Transmission Date: 20150821
  Serious: Yes (Life-Threatening, Hospitalization)
  Sender: FDA-Public Use
  Company Number: JP-ROXANE LABORATORIES, INC.-2015-BI-21178GD

PATIENT
  Age: 39 Year
  Sex: Male
  Weight: 80 kg

DRUGS (6)
  1. DIGOXIN. [Suspect]
     Active Substance: DIGOXIN
     Indication: ATRIAL FIBRILLATION
     Dosage: 0.125 MG
     Route: 065
     Dates: start: 2002, end: 200306
  2. OMEPRAZOLE. [Suspect]
     Active Substance: OMEPRAZOLE
     Indication: NAUSEA
  3. OMEPRAZOLE. [Suspect]
     Active Substance: OMEPRAZOLE
     Indication: DYSPEPSIA
     Dosage: 10 MG
     Route: 065
     Dates: start: 200303, end: 200306
  4. DISOPYRAMIDE PHOSPHATE. [Suspect]
     Active Substance: DISOPYRAMIDE PHOSPHATE
     Indication: ATRIAL FIBRILLATION
     Dosage: 300 MG
     Route: 065
     Dates: start: 2002, end: 200306
  5. PAROXETINE [Suspect]
     Active Substance: PAROXETINE\PAROXETINE HYDROCHLORIDE
     Indication: PANIC DISORDER
     Dosage: 20 MG
     Route: 065
     Dates: start: 2002, end: 200306
  6. TICLOPIDINE HYDROCHLORIDE. [Suspect]
     Active Substance: TICLOPIDINE HYDROCHLORIDE
     Indication: ATRIAL FIBRILLATION
     Dosage: 100 MG
     Route: 065
     Dates: start: 2002, end: 200306

REACTIONS (7)
  - Product use issue [Unknown]
  - Disseminated intravascular coagulation [Recovered/Resolved]
  - Rhabdomyolysis [Recovered/Resolved]
  - Renal failure [Recovered/Resolved]
  - Serotonin syndrome [Recovered/Resolved]
  - Acute hepatic failure [Recovered/Resolved]
  - Conduction disorder [Recovered/Resolved]

NARRATIVE: CASE EVENT DATE: 2003
